FAERS Safety Report 6934683-9 (Version None)
Quarter: 2010Q3

REPORT INFORMATION
  Report Type: 
  Country: None (occurrence: None)
  Receive Date: 20100820
  Receipt Date: 20100810
  Transmission Date: 20110219
  Serious: Yes (Death)
  Sender: FDA-Public Use
  Company Number: CO-GENENTECH-305375

PATIENT
  Age: 57 Year
  Sex: Female

DRUGS (2)
  1. MABTHERA [Suspect]
     Indication: DERMATOMYOSITIS
     Dosage: 1000 MG, UNK
     Route: 042
     Dates: start: 20100524, end: 20100524
  2. ACETAMINOPHEN [Concomitant]
     Indication: PAIN
     Dosage: 500 MG, PRN
     Route: 048

REACTIONS (1)
  - DISEASE PROGRESSION [None]
